FAERS Safety Report 10528548 (Version 2)
Quarter: 2014Q4

REPORT INFORMATION
  Report Type: Spontaneous
  Country: US (occurrence: US)
  Receive Date: 20141020
  Receipt Date: 20141118
  Transmission Date: 20150528
  Serious: Yes (Other)
  Sender: FDA-Public Use
  Company Number: US-PFIZER INC-2014282652

PATIENT
  Age: 52 Year
  Sex: Female
  Weight: 59 kg

DRUGS (1)
  1. LYRICA [Suspect]
     Active Substance: PREGABALIN
     Indication: FIBROMYALGIA
     Dosage: UNK
     Dates: end: 201409

REACTIONS (9)
  - Accident [Unknown]
  - Urinary tract infection [Unknown]
  - Fibromyalgia [Unknown]
  - Depression [Not Recovered/Not Resolved]
  - Eating disorder [Not Recovered/Not Resolved]
  - Epigastric discomfort [Unknown]
  - Spinal fracture [Unknown]
  - Malaise [Unknown]
  - Cerebrovascular accident [Unknown]

NARRATIVE: CASE EVENT DATE: 2012
